FAERS Safety Report 6274838-2 (Version None)
Quarter: 2009Q3

REPORT INFORMATION
  Report Type: 
  Country: None (occurrence: None)
  Receive Date: 20090721
  Receipt Date: 20090709
  Transmission Date: 20100115
  Serious: Yes (Life-Threatening, Hospitalization)
  Sender: FDA-Public Use
  Company Number: US-JNJFOC-20090703549

PATIENT
  Sex: Female

DRUGS (1)
  1. DOXIL [Suspect]
     Indication: GENITAL NEOPLASM MALIGNANT FEMALE
     Route: 042

REACTIONS (1)
  - CEREBROVASCULAR ACCIDENT [None]
